FAERS Safety Report 8998548 (Version 2)
Quarter: 2013Q1

REPORT INFORMATION
  Report Type: Spontaneous
  Country: US (occurrence: US)
  Receive Date: 20130105
  Receipt Date: 20130227
  Transmission Date: 20140127
  Serious: No
  Sender: FDA-Public Use
  Company Number: US-JNJFOC-20121204297

PATIENT
  Age: 16 Year
  Sex: Male

DRUGS (16)
  1. INVEGA SUSTENNA [Suspect]
     Indication: OPPOSITIONAL DEFIANT DISORDER
     Route: 030
     Dates: start: 20120926, end: 20120926
  2. INVEGA SUSTENNA [Suspect]
     Indication: POST-TRAUMATIC STRESS DISORDER
     Route: 030
     Dates: start: 20120926, end: 20120926
  3. INVEGA SUSTENNA [Suspect]
     Indication: INTERMITTENT EXPLOSIVE DISORDER
     Route: 030
     Dates: start: 20120926, end: 20120926
  4. INVEGA SUSTENNA [Suspect]
     Indication: ATTENTION DEFICIT/HYPERACTIVITY DISORDER
     Route: 030
     Dates: start: 20120926, end: 20120926
  5. INVEGA [Suspect]
     Indication: OPPOSITIONAL DEFIANT DISORDER
     Route: 048
  6. INVEGA [Suspect]
     Indication: OPPOSITIONAL DEFIANT DISORDER
     Route: 048
     Dates: end: 201209
  7. INVEGA [Suspect]
     Indication: POST-TRAUMATIC STRESS DISORDER
     Route: 048
  8. INVEGA [Suspect]
     Indication: POST-TRAUMATIC STRESS DISORDER
     Route: 048
     Dates: end: 201209
  9. INVEGA [Suspect]
     Indication: INTERMITTENT EXPLOSIVE DISORDER
     Route: 048
  10. INVEGA [Suspect]
     Indication: INTERMITTENT EXPLOSIVE DISORDER
     Route: 048
     Dates: end: 201209
  11. INVEGA [Suspect]
     Indication: ATTENTION DEFICIT/HYPERACTIVITY DISORDER
     Route: 048
     Dates: end: 201209
  12. INVEGA [Suspect]
     Indication: ATTENTION DEFICIT/HYPERACTIVITY DISORDER
     Route: 048
  13. ADDERALL [Concomitant]
     Indication: OPPOSITIONAL DEFIANT DISORDER
     Route: 048
  14. ADDERALL [Concomitant]
     Indication: POST-TRAUMATIC STRESS DISORDER
     Route: 048
  15. ADDERALL [Concomitant]
     Indication: INTERMITTENT EXPLOSIVE DISORDER
     Route: 048
  16. ADDERALL [Concomitant]
     Indication: ATTENTION DEFICIT/HYPERACTIVITY DISORDER
     Route: 048

REACTIONS (2)
  - Off label use [Not Recovered/Not Resolved]
  - Euphoric mood [Unknown]
